FAERS Safety Report 16064308 (Version 4)
Quarter: 2019Q4

REPORT INFORMATION
  Report Type: Spontaneous
  Country: US (occurrence: US)
  Receive Date: 20190312
  Receipt Date: 20191202
  Transmission Date: 20200122
  Serious: No
  Sender: FDA-Public Use
  Company Number: US-ACTELION-A-NJ2019-186719

PATIENT
  Sex: Female
  Weight: 94.33 kg

DRUGS (6)
  1. UPTRAVI [Suspect]
     Active Substance: SELEXIPAG
     Dosage: 1000 MCG, BID
     Route: 048
  2. UPTRAVI [Suspect]
     Active Substance: SELEXIPAG
     Dosage: 800 MCG, BID
     Route: 048
  3. UPTRAVI [Suspect]
     Active Substance: SELEXIPAG
     Indication: PULMONARY ARTERIAL HYPERTENSION
     Dosage: 600 MCG, BID
     Route: 048
  4. UPTRAVI [Suspect]
     Active Substance: SELEXIPAG
     Dosage: 400 MCG, BID
     Route: 048
  5. ADCIRCA [Concomitant]
     Active Substance: TADALAFIL
  6. LETAIRIS [Concomitant]
     Active Substance: AMBRISENTAN

REACTIONS (13)
  - Myalgia [Unknown]
  - Nausea [Unknown]
  - Malaise [Unknown]
  - Fatigue [Unknown]
  - Headache [Recovering/Resolving]
  - Fibromyalgia [Unknown]
  - Swelling face [Unknown]
  - Pain in extremity [Unknown]
  - Feeling abnormal [Unknown]
  - Bedridden [Recovering/Resolving]
  - Influenza [Unknown]
  - Insomnia [Unknown]
  - General physical health deterioration [Recovering/Resolving]
